FAERS Safety Report 24981587 (Version 2)
Quarter: 2025Q2

REPORT INFORMATION
  Report Type: Spontaneous
  Country: US (occurrence: US)
  Receive Date: 20250218
  Receipt Date: 20250410
  Transmission Date: 20250717
  Serious: Yes (Hospitalization, Other)
  Sender: PFIZER
  Company Number: US-PFIZER INC-202500036198

PATIENT
  Age: 61 Year
  Sex: Female

DRUGS (4)
  1. TRASTUZUMAB [Suspect]
     Active Substance: TRASTUZUMAB
     Dates: start: 20230309
  2. TRASTUZUMAB [Suspect]
     Active Substance: TRASTUZUMAB
     Dates: start: 20230316
  3. PERTUZUMAB [Suspect]
     Active Substance: PERTUZUMAB
     Dates: start: 20230406
  4. LETROZOLE [Suspect]
     Active Substance: LETROZOLE
     Dates: start: 20230426

REACTIONS (3)
  - Asthenia [Unknown]
  - Intracranial mass [Unknown]
  - Herpes zoster [Unknown]

NARRATIVE: CASE EVENT DATE: 20230808
